FAERS Safety Report 15474626 (Version 1)
Quarter: 2018Q4

REPORT INFORMATION
  Report Type: Spontaneous
  Country: US (occurrence: US)
  Receive Date: 20181008
  Receipt Date: 20181008
  Transmission Date: 20190205
  Serious: No
  Sender: FDA-Public Use
  Company Number: US-MYLANLABS-2018M1071437

PATIENT
  Age: 41 Year
  Sex: Female
  Weight: 58.5 kg

DRUGS (3)
  1. AEROSPAN [Suspect]
     Active Substance: FLUNISOLIDE
     Dosage: 2 DF, QD
     Route: 048
     Dates: start: 20180903, end: 20180906
  2. AEROSPAN [Suspect]
     Active Substance: FLUNISOLIDE
     Indication: ASTHMA
     Dosage: UNK
  3. AEROSPAN [Suspect]
     Active Substance: FLUNISOLIDE
     Dosage: UNK
     Dates: start: 20180911, end: 20180914

REACTIONS (6)
  - Pain [Recovered/Resolved]
  - Pharyngeal oedema [Recovered/Resolved]
  - Ear pain [Recovered/Resolved]
  - Erythema [Recovered/Resolved]
  - Eye swelling [Recovered/Resolved]
  - Swelling face [Recovered/Resolved]

NARRATIVE: CASE EVENT DATE: 20180904
